FAERS Safety Report 7762083-0 (Version None)
Quarter: 2011Q3

REPORT INFORMATION
  Report Type: 
  Country: None (occurrence: None)
  Receive Date: 20110920
  Receipt Date: 20110920
  Transmission Date: 20111222
  Serious: Yes (Hospitalization)
  Sender: FDA-Public Use
  Company Number: None

PATIENT
  Sex: Female
  Weight: 83.914 kg

DRUGS (1)
  1. BACTRIM [Suspect]
     Indication: CYSTITIS
     Dosage: ONE PILL
     Route: 048
     Dates: start: 20110912, end: 20110913

REACTIONS (3)
  - CONFUSIONAL STATE [None]
  - INSOMNIA [None]
  - HALLUCINATION [None]
